FAERS Safety Report 17894993 (Version 1)
Quarter: 2020Q2

REPORT INFORMATION
  Report Type: Spontaneous
  Country: RU (occurrence: RU)
  Receive Date: 20200615
  Receipt Date: 20200615
  Transmission Date: 20200714
  Serious: Yes (Hospitalization)
  Sender: FDA-Public Use
  Company Number: RU-BIOGEN-2020BI00881409

PATIENT
  Age: 4 Year
  Sex: Female
  Weight: 38 kg

DRUGS (2)
  1. SPINRAZA [Suspect]
     Active Substance: NUSINERSEN
     Indication: SPINAL MUSCULAR ATROPHY
     Route: 037
     Dates: start: 20200513
  2. SPINRAZA [Suspect]
     Active Substance: NUSINERSEN
     Route: 065
     Dates: start: 20200601

REACTIONS (16)
  - Transaminases increased [Unknown]
  - Headache [Unknown]
  - Dizziness postural [Unknown]
  - Nausea [Unknown]
  - Protein urine present [Unknown]
  - Gastrointestinal motility disorder [Unknown]
  - Hepatomegaly [Unknown]
  - Urine bilirubin increased [Unknown]
  - Hepatic enzyme increased [Unknown]
  - Vomiting [Unknown]
  - Blood creatinine decreased [Unknown]
  - Malaise [Unknown]
  - Lack of administration site rotation [Unknown]
  - Blood urea decreased [Unknown]
  - C-reactive protein increased [Unknown]
  - Ketonuria [Unknown]

NARRATIVE: CASE EVENT DATE: 202005
